FAERS Safety Report 20182921 (Version 2)
Quarter: 2021Q4

REPORT INFORMATION
  Report Type: Spontaneous
  Country: US (occurrence: US)
  Receive Date: 20211214
  Receipt Date: 20211222
  Transmission Date: 20220304
  Serious: Yes (Other)
  Sender: FDA-Public Use
  Company Number: US-PFIZER INC-202101753520

PATIENT
  Age: 71 Year
  Sex: Male

DRUGS (1)
  1. VYNDAMAX [Suspect]
     Active Substance: TAFAMIDIS
     Dosage: 61 MG

REACTIONS (12)
  - Mitral valve incompetence [Unknown]
  - Cardiac failure congestive [Unknown]
  - Chronic kidney disease [Unknown]
  - Prostate cancer [Unknown]
  - Acute kidney injury [Unknown]
  - Cataract [Unknown]
  - Arteriosclerosis coronary artery [Unknown]
  - Chronic left ventricular failure [Unknown]
  - Troponin increased [Unknown]
  - Osteoarthritis [Unknown]
  - Type IIa hyperlipidaemia [Unknown]
  - Hypertension [Unknown]
